FAERS Safety Report 7208417-7 (Version None)
Quarter: 2011Q1

REPORT INFORMATION
  Report Type: 
  Country: None (occurrence: None)
  Receive Date: 20110104
  Receipt Date: 20101221
  Transmission Date: 20110831
  Serious: Yes (Other)
  Sender: FDA-Public Use
  Company Number: US-ELI_LILLY_AND_COMPANY-US201012006146

PATIENT
  Sex: Female

DRUGS (5)
  1. KLONOPIN [Concomitant]
     Dosage: 1 MG, 2/D
  2. CYMBALTA [Suspect]
     Indication: MAJOR DEPRESSION
     Dosage: 60 MG, DAILY (1/D)
     Dates: start: 20070301, end: 20100401
  3. ADDERALL 10 [Concomitant]
     Dosage: 10 MG, 2/D
  4. CYMBALTA [Suspect]
     Dosage: 90 MG, DAILY (1/D)
     Dates: start: 20100401, end: 20100801
  5. CYMBALTA [Suspect]
     Dosage: 120 MG, DAILY (1/D)
     Dates: start: 20100801

REACTIONS (4)
  - TACHYCARDIA [None]
  - ANXIETY [None]
  - DEPRESSION [None]
  - LONG QT SYNDROME [None]
